FAERS Safety Report 8838505 (Version 1)
Quarter: 2012Q4

REPORT INFORMATION
  Report Type: 
  Country: US (occurrence: US)
  Receive Date: 20121012
  Receipt Date: 20121012
  Transmission Date: 20130627
  Serious: Yes (Hospitalization)
  Sender: FDA-Public Use
  Company Number: US-ROCHE-1142075

PATIENT
  Age: 1 Year
  Sex: Female
  Weight: 11.7 kg

DRUGS (4)
  1. NUTROPIN [Suspect]
     Indication: HYPOPITUITARISM
     Route: 058
     Dates: start: 20010501
  2. NUTROPIN [Suspect]
     Indication: GROWTH HORMONE DEFICIENCY
  3. ALBUTEROL [Concomitant]
     Dosage: 0.25 cc
     Route: 065
  4. HYDROCORTISONE [Concomitant]
     Dosage: 2 mg/ml 2.1 cc
     Route: 065

REACTIONS (1)
  - Excessive granulation tissue [Unknown]
